FAERS Safety Report 10725438 (Version 1)
Quarter: 2015Q1

REPORT INFORMATION
  Report Type: Spontaneous
  Country: VE (occurrence: VE)
  Receive Date: 20150121
  Receipt Date: 20150121
  Transmission Date: 20150721
  Serious: Yes (Death, Other)
  Sender: FDA-Public Use
  Company Number: VE-GLAXOSMITHKLINE-VE2015GSK005842

PATIENT
  Age: 53 Year
  Sex: Female

DRUGS (3)
  1. TAFINLAR [Suspect]
     Active Substance: DABRAFENIB MESYLATE
     Indication: SMALL INTESTINE ADENOCARCINOMA
     Dosage: 150 MG, BID
     Route: 048
     Dates: start: 20141001, end: 20141215
  2. CETUXIMAB [Concomitant]
     Active Substance: CETUXIMAB
     Indication: SMALL INTESTINE ADENOCARCINOMA
     Dosage: 500 MG/M2, 1D
     Route: 042
     Dates: start: 20141001, end: 20141215
  3. MEKINIST [Concomitant]
     Active Substance: TRAMETINIB DIMETHYL SULFOXIDE
     Indication: SMALL INTESTINE ADENOCARCINOMA
     Dosage: 2 MG, 1D
     Route: 048
     Dates: start: 20141001, end: 20141215

REACTIONS (1)
  - Death [Fatal]

NARRATIVE: CASE EVENT DATE: 20150107
